FAERS Safety Report 10256603 (Version 1)
Quarter: 2014Q2

REPORT INFORMATION
  Report Type: Report from Study
  Country: GB (occurrence: GB)
  Receive Date: 20140624
  Receipt Date: 20140624
  Transmission Date: 20141212
  Serious: Yes (Hospitalization)
  Sender: FDA-Public Use
  Company Number: GB-GILEAD-2014-0106382

PATIENT
  Age: 43 Year
  Sex: Male
  Weight: 88.7 kg

DRUGS (1)
  1. EMTRICITABINE/RILPIVIRINE/TENOFOVIR DF [Suspect]
     Indication: HIV INFECTION
     Dosage: 1 DF, QD
     Route: 048
     Dates: start: 20130817

REACTIONS (2)
  - Wrist fracture [Not Recovered/Not Resolved]
  - Road traffic accident [Not Recovered/Not Resolved]
